FAERS Safety Report 8645546 (Version 2)
Quarter: 2017Q1

REPORT INFORMATION
  Report Type: Spontaneous
  Country: US (occurrence: US)
  Receive Date: 20120702
  Receipt Date: 20170329
  Transmission Date: 20170429
  Serious: Yes (Disabling, Other)
  Sender: FDA-Public Use
  Company Number: US-PFIZER INC-2012156506

PATIENT
  Age: 53 Year
  Sex: Female
  Weight: 64 kg

DRUGS (2)
  1. PREMARIN [Concomitant]
     Active Substance: ESTROGENS, CONJUGATED
     Indication: HYSTERECTOMY
     Dosage: 0.9 MG, DAILY
     Route: 048
  2. ATROPINE SULFATE/DIPHENOXYLATE HYDROCHLORIDE [Suspect]
     Active Substance: ATROPINE SULFATE\DIPHENOXYLATE HYDROCHLORIDE
     Indication: DIARRHOEA
     Dosage: 2.5 MG, 3X/DAY

REACTIONS (4)
  - Impaired driving ability [Unknown]
  - Movement disorder [Unknown]
  - Dizziness [Unknown]
  - Nausea [Unknown]
